FAERS Safety Report 6743059-9 (Version None)
Quarter: 2010Q2

REPORT INFORMATION
  Report Type: 
  Country: None (occurrence: None)
  Receive Date: 20100527
  Receipt Date: 20100521
  Transmission Date: 20101027
  Serious: Yes (Hospitalization)
  Sender: FDA-Public Use
  Company Number: US-CEPHALON-2010002897

PATIENT
  Sex: Female
  Weight: 163 kg

DRUGS (15)
  1. PROVIGIL [Suspect]
     Indication: SLEEP APNOEA SYNDROME
     Route: 048
     Dates: start: 20050101, end: 20070101
  2. PROVIGIL [Suspect]
     Route: 048
     Dates: start: 20070101, end: 20090501
  3. CYMBALTA [Concomitant]
     Indication: BIPOLAR I DISORDER
     Dates: start: 20050101
  4. GLUCOVANCE [Concomitant]
     Indication: DIABETES MELLITUS
     Dates: start: 20050101
  5. XANAX [Concomitant]
     Indication: ANXIETY
     Dates: start: 19900101
  6. TOPROL-XL [Concomitant]
     Indication: HYPERTENSION
     Dates: start: 20090101
  7. LISINOPRIL [Concomitant]
     Indication: HYPERTENSION
     Dates: start: 20080101
  8. GABAPENTIN [Concomitant]
     Indication: NEUROPATHY PERIPHERAL
     Dates: start: 20070101
  9. MOBIC [Concomitant]
     Indication: ARTHRITIS
     Dates: start: 20090101
  10. MOBIC [Concomitant]
  11. ASPIRIN [Concomitant]
     Dates: start: 20090101
  12. LORCET-HD [Concomitant]
     Indication: PAIN
     Dates: start: 20020101
  13. ED-A-HIST [Concomitant]
     Indication: SINUS DISORDER
     Dates: start: 20070101
  14. B12/FISH OIL/ [Concomitant]
  15. INVEGA [Concomitant]
     Indication: BIPOLAR I DISORDER
     Dates: start: 20050101, end: 20100201

REACTIONS (7)
  - DRUG INEFFECTIVE [None]
  - DRY MOUTH [None]
  - EMOTIONAL DISTRESS [None]
  - HEART RATE INCREASED [None]
  - NERVOUSNESS [None]
  - PALPITATIONS [None]
  - THROAT TIGHTNESS [None]
